FAERS Safety Report 9441252 (Version 3)
Quarter: 2014Q1

REPORT INFORMATION
  Report Type: Spontaneous
  Country: US (occurrence: US)
  Receive Date: 20130805
  Receipt Date: 20140321
  Transmission Date: 20141002
  Serious: Yes (Hospitalization)
  Sender: FDA-Public Use
  Company Number: US-B.I. PHARMACEUTICALS,INC./RIDGEFIELD-2013-BI-23001BP

PATIENT
  Age: 58 Year
  Sex: Male
  Weight: 122.47 kg

DRUGS (22)
  1. PRADAXA [Suspect]
     Indication: ATRIAL FIBRILLATION
     Dosage: 150 MG
     Route: 065
     Dates: start: 20110510, end: 20110902
  2. ALLOPURINOL [Concomitant]
     Dosage: 20 MG
     Route: 065
  3. COREG [Concomitant]
     Dosage: 25 MG
     Route: 065
  4. LASIX [Concomitant]
     Dosage: 160 MG
     Route: 065
  5. HUMULIN N [Concomitant]
     Route: 065
  6. HUMULIN R [Concomitant]
     Route: 065
  7. SIMVASTATIN [Concomitant]
     Dosage: 20 MG
     Route: 065
  8. B-COMPLEX [Concomitant]
     Route: 065
  9. CINNAMON [Concomitant]
     Route: 065
  10. ECOTRIN - ASPIRIN [Concomitant]
     Route: 065
  11. FEOSOL - IRON [Concomitant]
     Route: 065
  12. FISH OIL [Concomitant]
     Route: 065
  13. MULTI-VITAMIN [Concomitant]
     Route: 065
  14. NIACIN [Concomitant]
     Route: 065
  15. VITAMIN C [Concomitant]
     Route: 065
  16. VITAMIN E [Concomitant]
     Route: 065
  17. COQ10 [Concomitant]
     Route: 065
  18. GLUCOSAMINE CHONDROITIN [Concomitant]
     Route: 065
  19. HYDRALAZINE [Concomitant]
     Dosage: 40 MG
     Route: 065
  20. NORVASC [Concomitant]
     Dosage: 2.5 MG
     Route: 065
  21. PROTONIX [Concomitant]
     Dosage: 80 MG
     Route: 065
  22. RENVELA [Concomitant]
     Route: 065

REACTIONS (4)
  - Gastrointestinal haemorrhage [Unknown]
  - Haemorrhagic anaemia [Unknown]
  - Renal failure acute [Unknown]
  - Epistaxis [Recovered/Resolved]
